FAERS Safety Report 11746722 (Version 2)
Quarter: 2016Q1

REPORT INFORMATION
  Report Type: Report from Study
  Country: CA (occurrence: CA)
  Receive Date: 20151117
  Receipt Date: 20160216
  Transmission Date: 20160525
  Serious: Yes (Other)
  Sender: FDA-Public Use
  Company Number: CA-JNJFOC-20151102498

PATIENT
  Age: 31 Year
  Sex: Male
  Weight: 110 kg

DRUGS (1)
  1. REMICADE [Suspect]
     Active Substance: INFLIXIMAB
     Indication: CROHN^S DISEASE
     Route: 042
     Dates: start: 20140911

REACTIONS (6)
  - Intestinal resection [Unknown]
  - Body temperature increased [Not Recovered/Not Resolved]
  - Enterostomy [Recovering/Resolving]
  - Sinus congestion [Not Recovered/Not Resolved]
  - Rales [Not Recovered/Not Resolved]
  - Oropharyngeal pain [Not Recovered/Not Resolved]

NARRATIVE: CASE EVENT DATE: 201511
